FAERS Safety Report 23853720 (Version 2)
Quarter: 2024Q2

REPORT INFORMATION
  Report Type: Spontaneous
  Country: US (occurrence: US)
  Receive Date: 20240514
  Receipt Date: 20240604
  Transmission Date: 20240716
  Serious: Yes (Hospitalization, Other)
  Sender: FDA-Public Use
  Company Number: US-002147023-NVSC2024US100186

PATIENT
  Age: 58 Year
  Sex: Female
  Weight: 108.3 kg

DRUGS (1)
  1. ENTRESTO [Suspect]
     Active Substance: SACUBITRIL\VALSARTAN
     Indication: Cardiac failure congestive
     Dosage: UNK UNK, QD (DAILY)
     Route: 048
     Dates: start: 20240503, end: 20240504

REACTIONS (6)
  - Angioedema [Recovered/Resolved]
  - Dyspnoea [Unknown]
  - Hyperhidrosis [Unknown]
  - Nausea [Unknown]
  - Tachypnoea [Unknown]
  - Cyanosis [Unknown]

NARRATIVE: CASE EVENT DATE: 20240504
